FAERS Safety Report 4877674-4 (Version None)
Quarter: 2005Q4

REPORT INFORMATION
  Report Type: 
  Country: None (occurrence: None)
  Receive Date: 20051206
  Receipt Date: 20050826
  Transmission Date: 20060501
  Serious: No
  Sender: FDA-Public Use
  Company Number: USA0508106943

PATIENT
  Age: 47 Year
  Sex: Female
  Weight: 145.151 kg

DRUGS (2)
  1. CYMBALTA [Suspect]
     Indication: DEPRESSION
     Dosage: 180 MG
     Dates: start: 20050201
  2. TRILEPTAL [Concomitant]

REACTIONS (3)
  - ESSENTIAL TREMOR [None]
  - PARAESTHESIA [None]
  - PRESCRIBED OVERDOSE [None]
